FAERS Safety Report 7098000-9 (Version None)
Quarter: 2010Q4

REPORT INFORMATION
  Report Type: 
  Country: None (occurrence: None)
  Receive Date: 20101112
  Receipt Date: 20101029
  Transmission Date: 20110411
  Serious: No
  Sender: FDA-Public Use
  Company Number: US-BAYER-201039655NA

PATIENT
  Age: 27 Year
  Sex: Female

DRUGS (1)
  1. MIRENA [Suspect]
     Indication: CONTRACEPTION
     Route: 015
     Dates: start: 20100701

REACTIONS (3)
  - PAIN [None]
  - PREGNANCY WITH CONTRACEPTIVE DEVICE [None]
  - URINARY TRACT INFECTION [None]
